FAERS Safety Report 7957947-9 (Version None)
Quarter: 2011Q4

REPORT INFORMATION
  Report Type: 
  Country: None (occurrence: None)
  Receive Date: 20111205
  Receipt Date: 20111118
  Transmission Date: 20120403
  Serious: Yes (Hospitalization, Other)
  Sender: FDA-Public Use
  Company Number: CHPA2011US10440

PATIENT
  Age: 65 Year
  Sex: Female

DRUGS (4)
  1. COUMADIN [Concomitant]
     Indication: ANTICOAGULANT THERAPY
     Dosage: UNK, QD
  2. CORTICOSTEROID NOS [Suspect]
  3. SALINEX NASAL MIST [Concomitant]
  4. OTRIVIN ALLERGY COLD + DECONGESTANT NASALSPRAY [Suspect]
     Indication: NASAL SEPTUM DEVIATION
     Dosage: UNK, 1-2 TIMES EVERY NIGHT
     Route: 045

REACTIONS (6)
  - DRUG DEPENDENCE [None]
  - OFF LABEL USE [None]
  - PAROSMIA [None]
  - EPISTAXIS [None]
  - HEART VALVE OPERATION [None]
  - INCORRECT DRUG ADMINISTRATION DURATION [None]
